FAERS Safety Report 4963015-0 (Version None)
Quarter: 2006Q2

REPORT INFORMATION
  Report Type: 
  Country: None (occurrence: None)
  Receive Date: 20060405
  Receipt Date: 20060324
  Transmission Date: 20061013
  Serious: Yes (Hospitalization)
  Sender: FDA-Public Use
  Company Number: US-JNJFOC-20060307158

PATIENT
  Sex: Male
  Weight: 167.83 kg

DRUGS (6)
  1. DURAGESIC-100 [Suspect]
     Route: 062
  2. DURAGESIC-100 [Suspect]
     Route: 062
  3. HYDROCODONE [Concomitant]
     Indication: PAIN
     Dosage: AS NEEDED
     Route: 048
  4. VERAPAMIL [Concomitant]
     Route: 048
  5. CITALOPRAM [Concomitant]
     Indication: ANTIDEPRESSANT THERAPY
     Route: 048
  6. NEXIUM [Concomitant]
     Route: 048

REACTIONS (3)
  - ARTHRITIS [None]
  - POST PROCEDURAL HAEMORRHAGE [None]
  - SKIN ULCER [None]
